FAERS Safety Report 23249151 (Version 2)
Quarter: 2024Q1

REPORT INFORMATION
  Report Type: Other
  Country: CA (occurrence: CA)
  Receive Date: 20231201
  Receipt Date: 20240322
  Transmission Date: 20240410
  Serious: Yes (Death, Hospitalization, Other)
  Sender: FDA-Public Use
  Company Number: CA-APOTEX-2023AP016975

PATIENT
  Age: 63 Year
  Sex: Male

DRUGS (13)
  1. ATOVAQUONE [Suspect]
     Active Substance: ATOVAQUONE
     Indication: Antiviral prophylaxis
     Dosage: UNK
     Route: 048
  2. AZATHIOPRINE [Suspect]
     Active Substance: AZATHIOPRINE
     Indication: Liver transplant
     Dosage: UNK
     Route: 065
  3. CYCLOSPORINE [Suspect]
     Active Substance: CYCLOSPORINE
     Indication: Liver transplant
     Dosage: UNK
     Route: 065
  4. SULFAMETHOXAZOLE\TRIMETHOPRIM [Suspect]
     Active Substance: SULFAMETHOXAZOLE\TRIMETHOPRIM
     Indication: Antiviral prophylaxis
     Dosage: UNK
     Route: 065
  5. SULFAMETHOXAZOLE\TRIMETHOPRIM [Suspect]
     Active Substance: SULFAMETHOXAZOLE\TRIMETHOPRIM
     Indication: Graft versus host disease
  6. VALGANCICLOVIR [Suspect]
     Active Substance: VALGANCICLOVIR
     Indication: Antiviral prophylaxis
     Dosage: UNK
     Route: 065
  7. TACROLIMUS [Suspect]
     Active Substance: TACROLIMUS
     Indication: Liver transplant
     Dosage: UNK
     Route: 065
  8. THYMOCYTE IMMUNE GLOBULIN NOS [Suspect]
     Active Substance: THYMOCYTE IMMUNE GLOBULIN NOS
     Indication: Graft versus host disease
     Dosage: UNK
     Route: 065
  9. SIMULECT [Suspect]
     Active Substance: BASILIXIMAB
     Indication: Evidence based treatment
     Dosage: UNK
     Route: 065
  10. SIMULECT [Suspect]
     Active Substance: BASILIXIMAB
     Indication: Liver transplant
  11. GANCICLOVIR [Suspect]
     Active Substance: GANCICLOVIR
     Indication: Antiviral prophylaxis
     Dosage: UNK
     Route: 042
  12. HYDROCORTISONE [Suspect]
     Active Substance: HYDROCORTISONE
     Indication: Graft versus host disease
     Dosage: UNK
     Route: 037
  13. METHOTREXATE SODIUM [Suspect]
     Active Substance: METHOTREXATE SODIUM
     Indication: Graft versus host disease
     Dosage: UNK
     Route: 037

REACTIONS (4)
  - Graft versus host disease [Fatal]
  - Thrombocytopenia [Fatal]
  - Thrombotic microangiopathy [Fatal]
  - Sepsis [Fatal]
